FAERS Safety Report 7449675-3 (Version None)
Quarter: 2011Q2

REPORT INFORMATION
  Report Type: 
  Country: None (occurrence: None)
  Receive Date: 20110421
  Receipt Date: 20110408
  Transmission Date: 20111010
  Serious: Yes (Hospitalization, Disabling)
  Sender: FDA-Public Use
  Company Number: TUK2011A00043

PATIENT
  Age: 75 Year
  Sex: Female

DRUGS (8)
  1. ADCAL-D3 (COLECALCIFEROL, CALCIUM CARBONATE) [Concomitant]
  2. ASPIRIN [Concomitant]
  3. NIFEDIPINE [Concomitant]
  4. ACTOS [Suspect]
     Indication: PRODUCT USED FOR UNKNOWN INDICATION
     Dosage: 45 MG (45 MG,1 IN 1 D)
     Route: 048
     Dates: end: 20110310
  5. METFORMIN (METFORMIN) [Concomitant]
  6. LISINOPRIL [Concomitant]
  7. ATORVASTATIN (ATROCASTATIN) [Concomitant]
  8. FERROUS FUMARATE [Concomitant]

REACTIONS (2)
  - FALL [None]
  - FEMUR FRACTURE [None]
